FAERS Safety Report 6999986-0 (Version None)
Quarter: 2010Q3

REPORT INFORMATION
  Report Type: 
  Country: None (occurrence: None)
  Receive Date: 20100920
  Receipt Date: 20090721
  Transmission Date: 20110219
  Serious: Yes (Other)
  Sender: FDA-Public Use
  Company Number: US-ASTRAZENECA-2007UW04380

PATIENT
  Age: 532 Month
  Sex: Male
  Weight: 121.1 kg

DRUGS (6)
  1. SEROQUEL [Suspect]
     Dosage: 100MG - 600 MG DAILY
     Route: 048
     Dates: start: 20040614
  2. ZOLOFT [Concomitant]
     Dates: start: 20040614
  3. MIRTAZAPINE [Concomitant]
     Dates: start: 20040614
  4. FLUPHENAZINE [Concomitant]
     Dates: start: 20050107
  5. LAMICTAL [Concomitant]
     Dates: start: 20060411
  6. REMERON [Concomitant]
     Dates: start: 20060411

REACTIONS (4)
  - DIABETES MELLITUS [None]
  - DIABETIC KETOACIDOSIS [None]
  - PANCREATITIS [None]
  - TYPE 1 DIABETES MELLITUS [None]
